FAERS Safety Report 6540157-X (Version None)
Quarter: 2010Q1

REPORT INFORMATION
  Report Type: 
  Country: None (occurrence: None)
  Receive Date: 20100115
  Receipt Date: 20100107
  Transmission Date: 20100710
  Serious: Yes (Hospitalization, Other)
  Sender: FDA-Public Use
  Company Number: DE-ABBOTT-09P-062-0500052-00

PATIENT
  Sex: Male

DRUGS (12)
  1. HUMIRA [Suspect]
     Indication: DRUG USE FOR UNKNOWN INDICATION
     Dates: start: 20070301, end: 20070301
  2. HUMIRA [Suspect]
     Dates: start: 20040301, end: 20040601
  3. HUMIRA [Suspect]
     Dates: start: 20070701, end: 20071001
  4. METHOTREXATE [Suspect]
     Indication: DRUG USE FOR UNKNOWN INDICATION
  5. METHOTREXATE [Suspect]
     Dates: start: 20070101
  6. INFLIXIMAB [Suspect]
     Indication: DRUG USE FOR UNKNOWN INDICATION
  7. LEFLUNOMIDE [Concomitant]
     Indication: DRUG USE FOR UNKNOWN INDICATION
     Dates: start: 20041101, end: 20070301
  8. LEFLUNOMIDE [Concomitant]
  9. ETANERCEPT [Concomitant]
     Indication: DRUG USE FOR UNKNOWN INDICATION
     Dates: start: 20020301, end: 20020401
  10. METHOTREXATE [Concomitant]
     Indication: RHEUMATOID ARTHRITIS
     Dosage: ONCE PER WEEK
     Dates: start: 20050101
  11. RITUXIMAB [Concomitant]
     Indication: RHEUMATOID ARTHRITIS
     Dates: start: 20071102
  12. INSULINE [Concomitant]
     Indication: DRUG USE FOR UNKNOWN INDICATION

REACTIONS (5)
  - BACTERIAL INFECTION [None]
  - CEREBRAL INFARCTION [None]
  - DUODENAL ULCER [None]
  - ILEUS PARALYTIC [None]
  - PNEUMONIA [None]
